FAERS Safety Report 9969708 (Version 1)
Quarter: 2014Q1

REPORT INFORMATION
  Report Type: Spontaneous
  Country: US (occurrence: None)
  Receive Date: 20140304
  Receipt Date: 20140304
  Transmission Date: 20141002
  Serious: Yes (Disabling)
  Sender: FDA-Public Use
  Company Number: None

PATIENT
  Age: 60 Year
  Sex: Female
  Weight: 55.79 kg

DRUGS (1)
  1. PREPOPIK [Suspect]
     Indication: PREOPERATIVE CARE
     Dosage: ONE PACKET IN WATER, TAKEN BY MOUTH
     Dates: start: 20131205

REACTIONS (4)
  - Pain [None]
  - Emotional disorder [None]
  - Discomfort [None]
  - Neuromyopathy [None]
